FAERS Safety Report 17832128 (Version 5)
Quarter: 2020Q4

REPORT INFORMATION
  Report Type: Report from Study
  Country: None (occurrence: US)
  Receive Date: 20200528
  Receipt Date: 20201201
  Transmission Date: 20210113
  Serious: Yes (Hospitalization, Other)
  Sender: FDA-Public Use
  Company Number: US-ABBVIE-20K-163-3419952-00

PATIENT
  Sex: Female

DRUGS (3)
  1. HUMIRA [Suspect]
     Active Substance: ADALIMUMAB
     Indication: RHEUMATOID ARTHRITIS
     Route: 058
  2. CELEBREX [Suspect]
     Active Substance: CELECOXIB
     Indication: PRODUCT USED FOR UNKNOWN INDICATION
     Route: 065
  3. HUMIRA [Suspect]
     Active Substance: ADALIMUMAB
     Indication: CROHN^S DISEASE
     Route: 058

REACTIONS (34)
  - Pelvic fracture [Recovered/Resolved]
  - Spinal fracture [Not Recovered/Not Resolved]
  - Malaise [Unknown]
  - Fall [Recovered/Resolved]
  - Haematuria [Unknown]
  - Arthralgia [Not Recovered/Not Resolved]
  - Urinary tract infection staphylococcal [Not Recovered/Not Resolved]
  - Crohn^s disease [Not Recovered/Not Resolved]
  - Arthropathy [Not Recovered/Not Resolved]
  - Rib fracture [Recovered/Resolved]
  - Kidney infection [Unknown]
  - Hypertrophic cardiomyopathy [Not Recovered/Not Resolved]
  - Hypoaesthesia oral [Unknown]
  - Facial bones fracture [Recovered/Resolved]
  - Autoimmune disorder [Not Recovered/Not Resolved]
  - Dyskinesia [Unknown]
  - Back pain [Not Recovered/Not Resolved]
  - Tendon pain [Not Recovered/Not Resolved]
  - Illness [Not Recovered/Not Resolved]
  - Heart rate decreased [Not Recovered/Not Resolved]
  - Intestinal fibrosis [Not Recovered/Not Resolved]
  - Chromaturia [Not Recovered/Not Resolved]
  - Ligament pain [Not Recovered/Not Resolved]
  - Near death experience [Not Recovered/Not Resolved]
  - Skin burning sensation [Not Recovered/Not Resolved]
  - Thyroid cancer [Recovered/Resolved]
  - Cardiac failure congestive [Not Recovered/Not Resolved]
  - Connective tissue disorder [Unknown]
  - Pain [Not Recovered/Not Resolved]
  - Drug specific antibody present [Not Recovered/Not Resolved]
  - Pericardial disease [Not Recovered/Not Resolved]
  - Constipation [Recovered/Resolved]
  - Chronic kidney disease [Not Recovered/Not Resolved]
  - Escherichia urinary tract infection [Not Recovered/Not Resolved]

NARRATIVE: CASE EVENT DATE: 1997
